FAERS Safety Report 7704783-4 (Version None)
Quarter: 2011Q3

REPORT INFORMATION
  Report Type: 
  Country: None (occurrence: None)
  Receive Date: 20110823
  Receipt Date: 20110818
  Transmission Date: 20111222
  Serious: Yes (Hospitalization, Other)
  Sender: FDA-Public Use
  Company Number: FR-PFIZER INC-2011193346

PATIENT
  Age: 56 Year
  Sex: Female

DRUGS (2)
  1. ENBREL [Suspect]
     Dosage: 1 DF, SINGLE
     Route: 058
     Dates: start: 20101015, end: 20101015
  2. VARENICLINE TARTRATE [Suspect]
     Indication: SMOKING CESSATION THERAPY
     Dosage: UNK
     Route: 048
     Dates: start: 20101018, end: 20101104

REACTIONS (6)
  - ASTHENIA [None]
  - RASH ERYTHEMATOUS [None]
  - RASH PAPULAR [None]
  - PRURIGO [None]
  - CYTOLYTIC HEPATITIS [None]
  - SKIN LESION [None]
